FAERS Safety Report 4850167-6 (Version None)
Quarter: 2005Q4

REPORT INFORMATION
  Report Type: 
  Country: None (occurrence: None)
  Receive Date: 20051123
  Receipt Date: 20050610
  Transmission Date: 20060501
  Serious: Yes (Other)
  Sender: FDA-Public Use
  Company Number: 2005087222

PATIENT
  Age: 84 Year
  Sex: Male
  Weight: 65.7716 kg

DRUGS (3)
  1. LIPITOR [Suspect]
     Indication: ILL-DEFINED DISORDER
     Dosage: 10 MG (10 MG, 1 IN 1 D), ORAL
     Route: 048
  2. LEXAPRO [Concomitant]
  3. PROTONIX [Concomitant]

REACTIONS (2)
  - BODY HEIGHT DECREASED [None]
  - PLATELET COUNT DECREASED [None]
